FAERS Safety Report 6035297-8 (Version None)
Quarter: 2009Q1

REPORT INFORMATION
  Report Type: 
  Country: None (occurrence: None)
  Receive Date: 20090109
  Receipt Date: 20080619
  Transmission Date: 20090719
  Serious: No
  Sender: FDA-Public Use
  Company Number: WAES 0806USA07540

PATIENT
  Age: 65 Year
  Sex: Male

DRUGS (2)
  1. PROSCAR [Suspect]
     Dosage: PO
     Route: 048
     Dates: start: 20080501, end: 20080601
  2. (THERAPY UNSPECIFIED) [Concomitant]

REACTIONS (1)
  - RASH ERYTHEMATOUS [None]
